FAERS Safety Report 5227678-7 (Version None)
Quarter: 2007Q1

REPORT INFORMATION
  Report Type: 
  Country: None (occurrence: None)
  Receive Date: 20070202
  Receipt Date: 20070126
  Transmission Date: 20070707
  Serious: Yes (Other)
  Sender: FDA-Public Use
  Company Number: DE-ABBOTT-07P-062-0354673-00

PATIENT
  Age: 60 Year
  Sex: Male

DRUGS (2)
  1. ERGENYL CHRONO TABLETS [Suspect]
     Indication: EPILEPSY
     Route: 048
     Dates: start: 19981101
  2. ERGENYL CHRONO TABLETS [Suspect]
     Indication: SUBARACHNOID HAEMORRHAGE

REACTIONS (1)
  - HAEMOCHROMATOSIS [None]
